FAERS Safety Report 13316042 (Version 3)
Quarter: 2017Q1

REPORT INFORMATION
  Report Type: Report from Study
  Country: US (occurrence: US)
  Receive Date: 20170310
  Receipt Date: 20170316
  Transmission Date: 20170428
  Serious: Yes (Hospitalization)
  Sender: FDA-Public Use
  Company Number: PHEH2015US010827

PATIENT
  Sex: Female

DRUGS (2)
  1. COSENTYX [Suspect]
     Active Substance: SECUKINUMAB
     Indication: PSORIASIS
  2. COSENTYX [Suspect]
     Active Substance: SECUKINUMAB
     Indication: PSORIASIS
     Dosage: 300 MG, QMO
     Route: 058
     Dates: start: 20150301

REACTIONS (8)
  - Rash [Unknown]
  - Malaise [Unknown]
  - Psoriasis [Unknown]
  - Drug effect incomplete [Unknown]
  - Skin plaque [Unknown]
  - Motion sickness [Unknown]
  - Pneumonia [Unknown]
  - Feeling abnormal [Unknown]
